FAERS Safety Report 20870941 (Version 1)
Quarter: 2022Q2

REPORT INFORMATION
  Report Type: Spontaneous
  Country: US (occurrence: US)
  Receive Date: 20220525
  Receipt Date: 20220525
  Transmission Date: 20220721
  Serious: Yes (Other)
  Sender: FDA-Public Use
  Company Number: US-BRISTOL-MYERS SQUIBB COMPANY-2022-039930

PATIENT
  Age: 63 Year
  Sex: Male
  Weight: 74.8 kg

DRUGS (1)
  1. POMALYST [Suspect]
     Active Substance: POMALIDOMIDE
     Indication: Plasma cell myeloma
     Dosage: FREQ : 3 WEEKS ON, 1 WEEK OFF.
     Route: 048
     Dates: start: 20210904, end: 20220503

REACTIONS (1)
  - Malignant neoplasm progression [Unknown]
